FAERS Safety Report 23083918 (Version 1)
Quarter: 2023Q4

REPORT INFORMATION
  Report Type: Report from Study
  Country: US (occurrence: US)
  Receive Date: 20231019
  Receipt Date: 20231019
  Transmission Date: 20240110
  Serious: Yes (Death)
  Sender: FDA-Public Use
  Company Number: US-ABBVIE-5456834

PATIENT
  Age: 61 Year
  Sex: Male

DRUGS (3)
  1. VENCLEXTA [Suspect]
     Active Substance: VENETOCLAX
     Indication: Acute leukaemia in remission
     Dosage: 2 TABLETS ON DAY 2?FORM STRENGTH-100 MILLIGRAM
     Route: 048
  2. VENCLEXTA [Suspect]
     Active Substance: VENETOCLAX
     Indication: Acute leukaemia in remission
     Dosage: 4 TABLETS ONCE DAILY THEREAFTER WITH FOOD AND FULL GLASS OF WATER?FORM STRENGTH- 100 MILLIGRAM
     Route: 048
     Dates: end: 202309
  3. VENCLEXTA [Suspect]
     Active Substance: VENETOCLAX
     Indication: Acute leukaemia in remission
     Dosage: DAY 1?TOOK 1 TABLET BY MOUTH?FORM STRENGTH -100 MILLIGRAM
     Route: 048

REACTIONS (1)
  - Death [Fatal]

NARRATIVE: CASE EVENT DATE: 20231004
